FAERS Safety Report 5629494-0 (Version None)
Quarter: 2008Q1

REPORT INFORMATION
  Report Type: 
  Country: None (occurrence: None)
  Receive Date: 20080215
  Receipt Date: 20080215
  Transmission Date: 20080703
  Serious: No
  Sender: FDA-Public Use
  Company Number: None

PATIENT
  Age: 41 Year
  Sex: Male
  Weight: 86.1834 kg

DRUGS (1)
  1. XALATAN [Suspect]
     Dosage: 1 DROP AT BEDTIME IN EYES
     Dates: start: 20071011, end: 20071125

REACTIONS (2)
  - EYE OEDEMA [None]
  - OCULAR HYPERAEMIA [None]
